FAERS Safety Report 7948651-1 (Version None)
Quarter: 2011Q4

REPORT INFORMATION
  Report Type: 
  Country: None (occurrence: None)
  Receive Date: 20111130
  Receipt Date: 20111130
  Transmission Date: 20120403
  Serious: Yes (Other)
  Sender: FDA-Public Use
  Company Number: None

PATIENT
  Age: 51 Year
  Sex: Female
  Weight: 59.874 kg

DRUGS (1)
  1. RECLAST [Suspect]
     Indication: OSTEOPOROSIS
     Dates: start: 20111110, end: 20111110

REACTIONS (7)
  - INFLUENZA LIKE ILLNESS [None]
  - DYSSTASIA [None]
  - JOINT CREPITATION [None]
  - CHILLS [None]
  - BONE PAIN [None]
  - GAIT DISTURBANCE [None]
  - ARTHRALGIA [None]
